FAERS Safety Report 9373142 (Version 1)
Quarter: 2013Q2

REPORT INFORMATION
  Report Type: Spontaneous
  Country: FR (occurrence: FR)
  Receive Date: 20130627
  Receipt Date: 20130627
  Transmission Date: 20140414
  Serious: Yes (Other)
  Sender: FDA-Public Use
  Company Number: FR-PFIZER INC-2013070713

PATIENT
  Age: 62 Year
  Sex: Male
  Weight: 79 kg

DRUGS (5)
  1. LYRICA [Suspect]
     Indication: NEUROPATHY PERIPHERAL
     Dosage: 300 MG IN THE MORNING AND 200 MG IN THE EVENING
     Route: 048
     Dates: start: 20081222, end: 20121206
  2. LYRICA [Suspect]
     Dosage: UNK
     Dates: start: 20121207
  3. CRESTOR [Concomitant]
     Indication: HYPERCHOLESTEROLAEMIA
     Dosage: 5 MG, 1X/DAY
     Route: 048
     Dates: start: 20051005
  4. DAFALGAN [Concomitant]
     Indication: PAIN
     Dosage: 1 G, 1X/DAY
     Route: 048
     Dates: start: 20110303
  5. ZYMA [Concomitant]
     Indication: VITAMIN D DEFICIENCY
     Dosage: 200000 IU, EVERY 4 MONTHS
     Route: 048
     Dates: start: 20121206

REACTIONS (2)
  - Visual acuity reduced [Not Recovered/Not Resolved]
  - Scotoma [Unknown]
